FAERS Safety Report 18568081 (Version 1)
Quarter: 2020Q4

REPORT INFORMATION
  Report Type: Spontaneous
  Country: US (occurrence: US)
  Receive Date: 20201202
  Receipt Date: 20201202
  Transmission Date: 20210114
  Serious: Yes (Other)
  Sender: FDA-Public Use
  Company Number: US-BRISTOL-MYERS SQUIBB COMPANY-BMS-2020-100225

PATIENT
  Age: 78 Year
  Sex: Male
  Weight: 88.44 kg

DRUGS (1)
  1. ELIQUIS [Suspect]
     Active Substance: APIXABAN
     Indication: THROMBOSIS PROPHYLAXIS
     Dosage: 5 MILLIGRAM, BID
     Route: 048
     Dates: start: 202003

REACTIONS (3)
  - Rash macular [Unknown]
  - Haemorrhage [Unknown]
  - Contusion [Unknown]

NARRATIVE: CASE EVENT DATE: 20201124
